FAERS Safety Report 6176615-X (Version None)
Quarter: 2009Q2

REPORT INFORMATION
  Report Type: 
  Country: None (occurrence: None)
  Receive Date: 20090501
  Receipt Date: 20090428
  Transmission Date: 20091009
  Serious: Yes (Death, Life-Threatening, Hospitalization)
  Sender: FDA-Public Use
  Company Number: GB-WYE-G03569209

PATIENT
  Age: 42 Year
  Sex: Male

DRUGS (15)
  1. RAPAMUNE [Suspect]
     Indication: IMMUNOSUPPRESSION
     Route: 048
     Dates: start: 20090306
  2. ATENOLOL [Concomitant]
     Route: 048
     Dates: start: 20061103
  3. ATORVASTATIN [Concomitant]
     Route: 048
     Dates: start: 20090408
  4. CO-TRIMOXAZOLE [Concomitant]
     Dosage: ^480 TABS 1 PER DAY^
     Route: 048
     Dates: start: 20081103
  5. FUROSEMIDE [Concomitant]
     Route: 048
     Dates: start: 20090327
  6. CLARAGINE [Concomitant]
     Indication: DIABETES MELLITUS
     Route: 030
     Dates: start: 20090424
  7. LOSARTAN POSTASSIUM [Concomitant]
     Route: 048
     Dates: start: 20090327
  8. MYFORTIC [Concomitant]
     Route: 048
     Dates: start: 20090223
  9. OMEPRAZOLE [Concomitant]
     Route: 048
     Dates: start: 20081103
  10. PREDNISOLONE [Concomitant]
     Route: 048
     Dates: start: 20090119
  11. INSULIN GLARGINE [Concomitant]
     Dosage: 10 (DOSAGE UNIT UNSPECIFIED) NOCTE
     Route: 058
     Dates: start: 20081103
  12. NOVORAPID [Concomitant]
     Indication: DIABETES MELLITUS
     Route: 030
     Dates: start: 20090424
  13. ASPIRIN [Concomitant]
     Route: 048
     Dates: start: 20081103
  14. INSULIN [Concomitant]
     Dosage: 16 UNIT EVERY 1 DAY
     Route: 058
     Dates: start: 20081103
  15. INSULIN [Concomitant]
     Dosage: VARIABLE SLIDING SCALE
     Route: 042
     Dates: start: 20090417

REACTIONS (2)
  - DEATH [None]
  - DIABETIC KETOACIDOSIS [None]
